FAERS Safety Report 7911222-7 (Version None)
Quarter: 2011Q4

REPORT INFORMATION
  Report Type: 
  Country: None (occurrence: None)
  Receive Date: 20111114
  Receipt Date: 20111107
  Transmission Date: 20120403
  Serious: Yes (Hospitalization, Other)
  Sender: FDA-Public Use
  Company Number: US-JNJFOC-20090107039

PATIENT
  Sex: Female

DRUGS (15)
  1. DIOVAN [Concomitant]
     Route: 065
  2. LOTREL [Concomitant]
     Route: 065
  3. RISPERDAL [Suspect]
     Indication: BIPOLAR I DISORDER
     Dates: start: 20040429, end: 20070706
  4. RISPERDAL [Suspect]
     Indication: SLEEP DISORDER THERAPY
     Dates: start: 20040429, end: 20070706
  5. LAMICTAL [Concomitant]
     Route: 065
  6. TRAZODONE HCL [Concomitant]
     Dosage: EVERY NIGHT
     Route: 065
  7. EFFEXOR [Concomitant]
     Route: 065
  8. WELLBUTRIN [Concomitant]
     Route: 065
  9. LUNESTA [Concomitant]
     Route: 065
  10. SEROQUEL [Suspect]
     Indication: BIPOLAR I DISORDER
     Dates: start: 20041115, end: 20070201
  11. PERPHENAZINE [Concomitant]
     Route: 065
  12. BENZTROPINE MESYLATE [Concomitant]
     Dosage: 1 MG IN THE MORNING AND IN THE NIGHT
     Route: 065
  13. RISPERDAL [Suspect]
     Indication: BIPOLAR DISORDER
     Dates: start: 20040429, end: 20070706
  14. SEROQUEL [Suspect]
     Indication: BIPOLAR DISORDER
     Dates: start: 20041115, end: 20070201
  15. SEROQUEL [Suspect]
     Indication: SLEEP DISORDER THERAPY
     Dates: start: 20041115, end: 20070201

REACTIONS (3)
  - TYPE 2 DIABETES MELLITUS [None]
  - LIVER FUNCTION TEST ABNORMAL [None]
  - DIABETIC COMA [None]
